FAERS Safety Report 6916901-6 (Version None)
Quarter: 2010Q3

REPORT INFORMATION
  Report Type: 
  Country: None (occurrence: None)
  Receive Date: 20100810
  Receipt Date: 20100803
  Transmission Date: 20110219
  Serious: Yes (Other)
  Sender: FDA-Public Use
  Company Number: B0668460A

PATIENT

DRUGS (1)
  1. ALLI [Suspect]
     Indication: PRODUCT USED FOR UNKNOWN INDICATION
     Route: 065

REACTIONS (5)
  - CIRCULATORY COLLAPSE [None]
  - DISORIENTATION [None]
  - HYPERHIDROSIS [None]
  - PAIN [None]
  - TREMOR [None]
